FAERS Safety Report 5821324-7 (Version None)
Quarter: 2008Q3

REPORT INFORMATION
  Report Type: 
  Country: None (occurrence: None)
  Receive Date: 20080722
  Receipt Date: 20080722
  Transmission Date: 20090109
  Serious: Yes (Disabling)
  Sender: FDA-Public Use
  Company Number: None

PATIENT
  Age: 34 Year
  Sex: Female
  Weight: 55 kg

DRUGS (2)
  1. KALETRA [Suspect]
     Indication: PROPHYLAXIS AGAINST HIV INFECTION
     Dosage: 2 TABLETS Q12H PO
     Route: 048
     Dates: start: 20080520, end: 20080520
  2. COMBIVIR [Suspect]
     Indication: PROPHYLAXIS AGAINST HIV INFECTION
     Dosage: 1 TABLET Q12TH PO
     Route: 048
     Dates: start: 20080520, end: 20080520

REACTIONS (3)
  - PRURITUS [None]
  - RASH [None]
  - URTICARIA [None]
